FAERS Safety Report 24943544 (Version 1)
Quarter: 2025Q1

REPORT INFORMATION
  Report Type: Spontaneous
  Country: DE (occurrence: DE)
  Receive Date: 20250207
  Receipt Date: 20250207
  Transmission Date: 20250409
  Serious: Yes (Hospitalization, Other)
  Sender: ALEXION PHARMACEUTICALS
  Company Number: DE-ASTRAZENECA-202502EEA002978DE

PATIENT
  Age: 81 Year

DRUGS (4)
  1. CALQUENCE [Suspect]
     Active Substance: ACALABRUTINIB
     Route: 065
  2. TICAGRELOR [Suspect]
     Active Substance: TICAGRELOR
     Route: 065
  3. IBRUTINIB [Concomitant]
     Active Substance: IBRUTINIB
     Route: 065
  4. VENETOCLAX [Concomitant]
     Active Substance: VENETOCLAX
     Route: 065

REACTIONS (10)
  - Melaena [Unknown]
  - COVID-19 [Unknown]
  - Pneumonia [Unknown]
  - Drug intolerance [Unknown]
  - Arthralgia [Unknown]
  - Haematoma [Unknown]
  - Diarrhoea [Unknown]
  - Influenza A virus test [Unknown]
  - Cardiac disorder [Unknown]
  - Diastolic dysfunction [Unknown]
